FAERS Safety Report 9068950 (Version 1)
Quarter: 2013Q1

REPORT INFORMATION
  Report Type: Spontaneous
  Country: CZ (occurrence: CZ)
  Receive Date: 20130215
  Receipt Date: 20130215
  Transmission Date: 20140127
  Serious: Yes (Hospitalization)
  Sender: FDA-Public Use
  Company Number: CZ-SANOFI-AVENTIS-2013SA012143

PATIENT
  Age: 64 Year
  Sex: Male

DRUGS (12)
  1. CLOPIDOGREL BISULFATE [Suspect]
     Indication: PRODUCT USED FOR UNKNOWN INDICATION
     Dosage: FORM:TBL
     Route: 048
  2. PLAVIX [Suspect]
     Indication: PRODUCT USED FOR UNKNOWN INDICATION
     Dosage: FORM: TBL
     Route: 065
  3. CONTRAST MEDIA [Suspect]
  4. ANOPYRIN [Concomitant]
     Dosage: STRENGTH: 100 MG TBL
  5. RILMENIDINE [Concomitant]
     Dosage: FORM:TBL
  6. LERCANIDIPINE HYDROCHLORIDE [Concomitant]
  7. CONCOR [Concomitant]
     Dosage: STRENGTH: 2.5 MG
  8. CONTROLOC [Concomitant]
     Dosage: FORM: TBL
  9. ATORVASTATIN [Concomitant]
     Dosage: FORM: TBL
  10. HUMULIN R [Concomitant]
     Dosage: REGIMEN:20-14-16IU
  11. HUMULIN N [Concomitant]
     Dosage: EVENING
  12. LOSARTAN [Concomitant]

REACTIONS (4)
  - Oedema peripheral [Recovered/Resolved]
  - Rash generalised [Recovered/Resolved]
  - Pruritus [Recovered/Resolved]
  - Erythema [Recovered/Resolved]
